FAERS Safety Report 21377535 (Version 10)
Quarter: 2022Q4

REPORT INFORMATION
  Report Type: Spontaneous
  Country: US (occurrence: US)
  Receive Date: 20220926
  Receipt Date: 20221215
  Transmission Date: 20230112
  Serious: No
  Sender: FDA-Public Use
  Company Number: US-PFIZER INC-PV202200069304

PATIENT
  Age: 59 Year
  Sex: Female

DRUGS (1)
  1. IBRANCE [Suspect]
     Active Substance: PALBOCICLIB
     Dosage: 125 MG

REACTIONS (17)
  - Fatigue [Not Recovered/Not Resolved]
  - Arthralgia [Unknown]
  - Ear disorder [Unknown]
  - Pyrexia [Unknown]
  - Myalgia [Unknown]
  - Feeling cold [Unknown]
  - Night sweats [Not Recovered/Not Resolved]
  - Vulvovaginal dryness [Unknown]
  - Arthropathy [Unknown]
  - Decreased appetite [Not Recovered/Not Resolved]
  - Ageusia [Unknown]
  - Chills [Not Recovered/Not Resolved]
  - Insomnia [Not Recovered/Not Resolved]
  - Mood altered [Unknown]
  - Hyperhidrosis [Unknown]
  - Pain [Unknown]
  - Product dose omission issue [Unknown]
